FAERS Safety Report 4326381-5 (Version None)
Quarter: 2004Q1

REPORT INFORMATION
  Report Type: 
  Country: None (occurrence: None)
  Receive Date: 20040330
  Receipt Date: 20040322
  Transmission Date: 20041129
  Serious: Yes (Hospitalization)
  Sender: FDA-Public Use
  Company Number: PHBS2004SE03964

PATIENT
  Age: 68 Year
  Sex: Female

DRUGS (16)
  1. VOLTAREN [Suspect]
     Indication: CHOLELITHIASIS
     Route: 030
     Dates: start: 20031217, end: 20031221
  2. TRIATEC [Suspect]
     Indication: HYPERTONIA
     Dosage: 10 MG/DAY
     Route: 048
     Dates: start: 20030501, end: 20031222
  3. SELOKEN ZOC [Concomitant]
     Dosage: 200 MG/DAY
  4. ACTRAPID HUMAN [Concomitant]
  5. ACETAMINOPHEN [Concomitant]
     Dosage: 500 MG/DAY
  6. SALURES [Concomitant]
     Dosage: 2.5 MG/DAY
  7. DAONIL [Concomitant]
     Dosage: 3.5 MG/DAY
  8. SUSCARD [Concomitant]
     Dosage: 2.5 MG/DAY
  9. FRAGMIN [Concomitant]
  10. PLENDIL [Concomitant]
     Dosage: 10 MG/DAY
  11. METFORMIN HCL [Concomitant]
     Dosage: 850 MG/DAY
  12. TROMBYL [Concomitant]
     Dosage: 160 MG/DAY
  13. FUROSEMID ^NORDIC^ [Concomitant]
     Dosage: 40 MG/DAY
  14. IMDUR [Concomitant]
     Dosage: 30 MG/DAY
  15. PANTOPRAZOLE [Concomitant]
     Dosage: 40 MG/DAY
  16. VENOFER [Concomitant]

REACTIONS (11)
  - ATRIAL FIBRILLATION [None]
  - BLOOD CREATININE INCREASED [None]
  - CARDIAC ASTHMA [None]
  - CHOLECYSTITIS [None]
  - DYSPNOEA [None]
  - HAEMODIALYSIS [None]
  - HYPERTENSION [None]
  - PULMONARY OEDEMA [None]
  - RENAL ARTERY STENOSIS [None]
  - RENAL FAILURE [None]
  - RENAL FAILURE ACUTE [None]
